FAERS Safety Report 9796831 (Version 2)
Quarter: 2014Q1

REPORT INFORMATION
  Report Type: Spontaneous
  Country: US (occurrence: US)
  Receive Date: 20140103
  Receipt Date: 20140103
  Transmission Date: 20141002
  Serious: Yes (Death)
  Sender: FDA-Public Use
  Company Number: US-PFIZER INC-2013374675

PATIENT
  Age: 75 Year
  Sex: Female

DRUGS (4)
  1. METHYLPREDNISOLONE [Suspect]
     Indication: INTERSTITIAL LUNG DISEASE
     Dosage: 2 MG/KG, STEROID TAPER
  2. METHYLPREDNISOLONE [Suspect]
     Dosage: 3 G OVER 20 DAYS
  3. AMIODARONE [Concomitant]
     Dosage: MAINTENANCE DOSES
  4. WARFARIN [Concomitant]
     Dosage: MAINTENANCE DOSES

REACTIONS (3)
  - Zygomycosis [Fatal]
  - Gastrointestinal fungal infection [Fatal]
  - Gastrointestinal haemorrhage [Fatal]
